FAERS Safety Report 6423466-4 (Version None)
Quarter: 2009Q4

REPORT INFORMATION
  Report Type: 
  Country: None (occurrence: None)
  Receive Date: 20091102
  Receipt Date: 20091027
  Transmission Date: 20100525
  Serious: Yes (Other)
  Sender: FDA-Public Use
  Company Number: D0059858A

PATIENT
  Sex: Female
  Weight: 74 kg

DRUGS (5)
  1. TWINRIX [Suspect]
     Indication: PROPHYLAXIS
     Dosage: 1ML SINGLE DOSE
     Route: 058
     Dates: start: 20081204, end: 20081204
  2. KALETRA [Suspect]
     Route: 048
  3. COMBIVIR [Suspect]
     Route: 048
  4. RETROVIR [Suspect]
     Route: 042
  5. FRAXIPARIN [Concomitant]
     Indication: THROMBOSIS PROPHYLAXIS
     Route: 065

REACTIONS (4)
  - ANAEMIA POSTOPERATIVE [None]
  - BETA HAEMOLYTIC STREPTOCOCCAL INFECTION [None]
  - DRUG EXPOSURE DURING PREGNANCY [None]
  - LIVE BIRTH [None]
